FAERS Safety Report 6326344-4 (Version None)
Quarter: 2009Q3

REPORT INFORMATION
  Report Type: 
  Country: None (occurrence: None)
  Receive Date: 20090821
  Receipt Date: 20090817
  Transmission Date: 20100115
  Serious: Yes (Other)
  Sender: FDA-Public Use
  Company Number: 356228

PATIENT
  Age: 61 Year
  Sex: Male

DRUGS (3)
  1. PACLITAXEL [Suspect]
     Indication: METASTASES TO LUNG
     Dosage: 200 MG/M2, FIVE MONTHLY CYCLES
     Route: 042
  2. PACLITAXEL [Suspect]
     Indication: NEOPLASM RECURRENCE
     Dosage: 200 MG/M2, FIVE MONTHLY CYCLES
     Route: 042
  3. ALLOPURINOL [Suspect]
     Indication: GOUT
     Dosage: 200 MG, ORAL
     Route: 048

REACTIONS (4)
  - CONDITION AGGRAVATED [None]
  - DRUG INTERACTION [None]
  - GOUT [None]
  - NO THERAPEUTIC RESPONSE [None]
